FAERS Safety Report 16588868 (Version 1)
Quarter: 2019Q3

REPORT INFORMATION
  Report Type: Spontaneous
  Country: FR (occurrence: FR)
  Receive Date: 20190718
  Receipt Date: 20190718
  Transmission Date: 20191004
  Serious: Yes (Other)
  Sender: FDA-Public Use
  Company Number: FR-ORION CORPORATION ORION PHARMA-19_00006599

PATIENT
  Age: 65 Year
  Sex: Female
  Weight: 76 kg

DRUGS (7)
  1. HUMIRA [Suspect]
     Active Substance: ADALIMUMAB
     Indication: SPONDYLITIS
     Route: 048
     Dates: start: 201307, end: 201605
  2. ESOMEPRAZOLE. [Concomitant]
     Active Substance: ESOMEPRAZOLE MAGNESIUM
     Route: 048
     Dates: start: 20181001
  3. IMETH [Suspect]
     Active Substance: METHOTREXATE SODIUM
     Indication: SPONDYLITIS
     Route: 048
     Dates: start: 20171106
  4. SALAZOPYRINE [Concomitant]
     Active Substance: SULFASALAZINE
     Dosage: STRENGTH: 500 MG
     Route: 048
     Dates: start: 20130101, end: 20171106
  5. SPECIAFOLDINE [Concomitant]
     Active Substance: FOLIC ACID
     Dosage: STRENGTH: 5 MG
     Route: 048
     Dates: start: 20171106
  6. REMSIMA [Suspect]
     Active Substance: INFLIXIMAB
     Indication: SPONDYLITIS
     Route: 042
     Dates: start: 20160503, end: 20181217
  7. PRAVASTATIN SODIUM. [Concomitant]
     Active Substance: PRAVASTATIN SODIUM
     Route: 048

REACTIONS (2)
  - Breast cancer [Not Recovered/Not Resolved]
  - Product use in unapproved indication [Unknown]

NARRATIVE: CASE EVENT DATE: 20181228
